FAERS Safety Report 9270027 (Version 1)
Quarter: 2013Q2

REPORT INFORMATION
  Report Type: Spontaneous
  Country: US (occurrence: US)
  Receive Date: 20130503
  Receipt Date: 20130503
  Transmission Date: 20140414
  Serious: No
  Sender: FDA-Public Use
  Company Number: US-B.I. PHARMACEUTICALS,INC./RIDGEFIELD-2013-BI-11604BP

PATIENT
  Age: 88 Year
  Sex: Male
  Weight: 82 kg

DRUGS (4)
  1. PRADAXA [Suspect]
     Indication: HEART RATE IRREGULAR
     Dosage: 150 MG
     Route: 048
     Dates: start: 201301
  2. AMIODARONE [Concomitant]
     Indication: HEART RATE IRREGULAR
     Route: 048
     Dates: start: 2012
  3. METOPROLOL [Concomitant]
     Indication: HYPERTENSION
     Route: 048
     Dates: start: 2012
  4. DIURETIC [Concomitant]
     Indication: FLUID RETENTION
     Route: 048
     Dates: start: 2012

REACTIONS (7)
  - Cataract [Not Recovered/Not Resolved]
  - Scratch [Recovered/Resolved]
  - Haemorrhage [Recovered/Resolved]
  - Fall [Recovered/Resolved]
  - Balance disorder [Recovered/Resolved]
  - Contusion [Recovered/Resolved]
  - Dyspnoea [Recovered/Resolved]
